FAERS Safety Report 19031351 (Version 2)
Quarter: 2021Q2

REPORT INFORMATION
  Report Type: Spontaneous
  Country: US (occurrence: US)
  Receive Date: 20210319
  Receipt Date: 20210513
  Transmission Date: 20210717
  Serious: Yes (Death, Life-Threatening)
  Sender: FDA-Public Use
  Company Number: US-FRESENIUS KABI-FK202102656

PATIENT
  Age: 63 Year
  Sex: Female
  Weight: 71.3 kg

DRUGS (4)
  1. FOLINIC ACID [Suspect]
     Active Substance: LEUCOVORIN
     Indication: CHOLANGIOCARCINOMA
     Dosage: CONTINUING ?Q2W
     Route: 042
     Dates: start: 20200914, end: 20210111
  2. FLUOROURACIL (MANUFACTURER UNKNOWN) [Suspect]
     Active Substance: FLUOROURACIL
     Indication: CHOLANGIOCARCINOMA
     Dosage: 5?FLUOROURACIL ?CONTINUING ?Q2W
     Route: 042
     Dates: start: 20200914, end: 20210111
  3. IRINOTECAN MONOHYDROCHLORIDE TRIHYDRATE [Suspect]
     Active Substance: IRINOTECAN HYDROCHLORIDE
     Indication: CHOLANGIOCARCINOMA
     Dosage: CONTINUING ?Q2W
     Route: 042
     Dates: start: 20200914, end: 20210111
  4. NIVOLUMAB [Suspect]
     Active Substance: NIVOLUMAB
     Indication: CHOLANGIOCARCINOMA
     Dosage: CONTINUING ?Q2W
     Route: 042
     Dates: start: 20200914, end: 20210111

REACTIONS (2)
  - Cholangitis [Unknown]
  - Biliary tract infection [Recovered/Resolved]

NARRATIVE: CASE EVENT DATE: 20210208
